FAERS Safety Report 7893174-1 (Version None)
Quarter: 2011Q4

REPORT INFORMATION
  Report Type: 
  Country: None (occurrence: None)
  Receive Date: 20111104
  Receipt Date: 20111028
  Transmission Date: 20120403
  Serious: Yes (Life-Threatening)
  Sender: FDA-Public Use
  Company Number: PHHY2010JP26733

PATIENT
  Sex: Male
  Weight: 61 kg

DRUGS (19)
  1. LASIX [Concomitant]
     Dosage: 120 MG, UNK
     Route: 048
     Dates: start: 20080402, end: 20090808
  2. URSO 250 [Concomitant]
     Dosage: 600 MG
     Route: 048
     Dates: start: 20011201
  3. KREMEZIN [Concomitant]
     Dosage: 3 G, UNK
     Route: 048
     Dates: start: 20080304
  4. EPOETIN BETA [Concomitant]
     Dosage: 6000 IU
     Route: 058
     Dates: start: 20080521, end: 20080625
  5. ASPIRIN [Concomitant]
     Dosage: 100 MG, UNK
     Route: 048
     Dates: start: 20060216
  6. LASIX [Concomitant]
     Indication: HYPERTENSION
     Dosage: 40 MG
     Route: 048
     Dates: start: 20080402, end: 20090808
  7. LASIX [Concomitant]
     Dosage: 40 MG, UNK
     Route: 048
     Dates: start: 20080402, end: 20090808
  8. ACECOL [Concomitant]
     Indication: HYPERTENSION
     Dosage: UNK
     Route: 048
     Dates: start: 20000225
  9. FERROUS CITRATE [Concomitant]
     Dosage: 100 MG
     Route: 048
     Dates: start: 20060727
  10. VALSARTAN [Suspect]
     Indication: HYPERTENSION
     Dosage: 40 MG, QD
     Route: 048
     Dates: start: 20080318, end: 20080416
  11. NORVASC [Concomitant]
     Indication: HYPERTENSION
     Dosage: 5 MG
     Route: 048
     Dates: start: 20020118
  12. TAURINE [Concomitant]
     Dosage: 3 G, UNK
     Route: 048
     Dates: start: 20080521
  13. KREMEZIN [Concomitant]
     Dosage: 3 G, UNK
     Route: 048
     Dates: start: 20080304
  14. DIART [Concomitant]
     Indication: HYPERTENSION
     Dosage: 30 MG
     Route: 048
     Dates: start: 20090808
  15. KALIMATE [Concomitant]
     Dosage: 10.8 MG
     Route: 048
     Dates: start: 20081216
  16. INSULIN HUMAN [Concomitant]
     Dosage: 12 IU/ML
     Route: 058
     Dates: start: 20020315, end: 20080823
  17. TAURINE [Concomitant]
     Dosage: 3 G, UNK
     Route: 048
     Dates: start: 20080521
  18. VALSARTAN [Suspect]
     Dosage: 80 MG, QD
     Route: 048
     Dates: start: 20080416
  19. NORVASC [Concomitant]
     Dosage: 2.5 MG, UNK
     Route: 048
     Dates: start: 20020118

REACTIONS (3)
  - DIABETIC NEPHROPATHY [None]
  - HYPERKALAEMIA [None]
  - CONDITION AGGRAVATED [None]
